FAERS Safety Report 9469889 (Version 3)
Quarter: 2013Q4

REPORT INFORMATION
  Report Type: Spontaneous
  Country: JP (occurrence: JP)
  Receive Date: 20130822
  Receipt Date: 20131011
  Transmission Date: 20140711
  Serious: Yes (Other)
  Sender: FDA-Public Use
  Company Number: JP-NAPPMUNDI-GBR-2013-0015324

PATIENT
  Age: 40 Year
  Sex: Male

DRUGS (3)
  1. OXYCODONE HYDROCHLORIDE [Suspect]
     Indication: PRODUCT USED FOR UNKNOWN INDICATION
     Dosage: 72 MG, DAILY
     Route: 042
     Dates: start: 20130524
  2. OXYCODONE HYDROCHLORIDE [Suspect]
     Dosage: 48 MG, DAILY
     Dates: end: 20130524
  3. OXYCODONE HCL PR TABLET 40 MG [Suspect]
     Indication: PRODUCT USED FOR UNKNOWN INDICATION
     Dosage: 40 MG, DAILY
     Route: 048
     Dates: end: 20130519

REACTIONS (1)
  - Delirium [Not Recovered/Not Resolved]
